FAERS Safety Report 20315434 (Version 1)
Quarter: 2022Q1

REPORT INFORMATION
  Report Type: Spontaneous
  Country: US (occurrence: None)
  Receive Date: 20220110
  Receipt Date: 20220110
  Transmission Date: 20220423
  Serious: No
  Sender: FDA-Public Use
  Company Number: US-Unichem Pharmaceuticals (USA) Inc-UCM202107-000679

PATIENT
  Age: 70 Year
  Sex: Male
  Weight: 113.39 kg

DRUGS (4)
  1. MELOXICAM [Suspect]
     Active Substance: MELOXICAM
     Indication: Arthritis
     Route: 048
     Dates: start: 20210709
  2. METHOTREXATE [Concomitant]
     Active Substance: METHOTREXATE
     Indication: Eye disorder
     Dosage: UNKNOWN
  3. FOLIC ACID [Concomitant]
     Active Substance: FOLIC ACID
     Indication: Product used for unknown indication
     Dosage: ONCE PER WEEK
  4. Trams [Concomitant]
     Indication: Urinary tract disorder
     Dosage: UNKNOWN

REACTIONS (4)
  - Blood disorder [Unknown]
  - Product dose omission issue [Unknown]
  - Dizziness [Recovering/Resolving]
  - Vision blurred [Not Recovered/Not Resolved]

NARRATIVE: CASE EVENT DATE: 20210714
